FAERS Safety Report 8742401 (Version 2)
Quarter: 2012Q4

REPORT INFORMATION
  Report Type: 
  Country: FR (occurrence: FR)
  Receive Date: 20120824
  Receipt Date: 20120913
  Transmission Date: 20130627
  Serious: Yes (Other)
  Sender: FDA-Public Use
  Company Number: FR-PFIZER INC-2012197116

PATIENT
  Age: 51 Year
  Sex: Male
  Weight: 108 kg

DRUGS (4)
  1. ATORVASTATIN CALCIUM [Suspect]
     Dosage: 10 mg, UNK
     Route: 048
     Dates: start: 20120723, end: 20120805
  2. KARDEGIC [Concomitant]
     Indication: ANTICOAGULANT THERAPY
     Dosage: 75 mg, once daily
     Route: 048
  3. DEPAKINE CHRONO [Concomitant]
     Indication: CONVULSIVE THRESHOLD LOWERED
     Dosage: 500 mg, twice daily
     Route: 048
  4. PROZAC [Concomitant]
     Indication: PROPHYLAXIS
     Dosage: 20 mg, once daily
     Route: 048

REACTIONS (9)
  - Malaise [Recovered/Resolved]
  - Dizziness [Recovered/Resolved]
  - Syncope [Recovered/Resolved]
  - Balance disorder [Recovered/Resolved]
  - Paraesthesia [Recovered/Resolved]
  - Pruritus [Recovered/Resolved]
  - Renal pain [Recovered/Resolved]
  - Dysuria [Recovered/Resolved]
  - Anxiety [Recovered/Resolved]
